FAERS Safety Report 8920670 (Version 1)
Quarter: 2012Q4

REPORT INFORMATION
  Report Type: 
  Country: US (occurrence: US)
  Receive Date: 20121122
  Receipt Date: 20121122
  Transmission Date: 20130627
  Serious: Yes (Hospitalization)
  Sender: FDA-Public Use
  Company Number: US-009507513-1211USA007738

PATIENT
  Sex: Female

DRUGS (2)
  1. INVANZ [Suspect]
  2. CUBICIN [Concomitant]

REACTIONS (1)
  - Convulsion [Recovering/Resolving]
